FAERS Safety Report 6433616-1 (Version None)
Quarter: 2009Q4

REPORT INFORMATION
  Report Type: 
  Country: None (occurrence: None)
  Receive Date: 20091106
  Receipt Date: 20091106
  Transmission Date: 20100525
  Serious: Yes (Hospitalization)
  Sender: FDA-Public Use
  Company Number: None

PATIENT
  Age: 43 Year

DRUGS (2)
  1. HYDROCHLOROTHIAZIDE [Suspect]
     Indication: HYPERTENSION
     Dosage: 50 MG EVERY DAY PO
     Route: 048
     Dates: start: 20090720, end: 20090721
  2. LOSARTAN [Suspect]
     Indication: HYPERTENSION
     Dosage: 100 MG EVERY DAY PO
     Route: 048
     Dates: start: 20090720, end: 20090721

REACTIONS (3)
  - BLOOD PRESSURE DIASTOLIC DECREASED [None]
  - DIZZINESS [None]
  - HYPOTENSION [None]
